FAERS Safety Report 9022384 (Version 2)
Quarter: 2013Q1

REPORT INFORMATION
  Report Type: Report from Study
  Country: FR (occurrence: FR)
  Receive Date: 20130118
  Receipt Date: 20130204
  Transmission Date: 20140127
  Serious: Yes (Death, Life-Threatening, Hospitalization, Other)
  Sender: FDA-Public Use
  Company Number: FR-MILLENNIUM PHARMACEUTICALS, INC.-2013-00426

PATIENT
  Sex: 0

DRUGS (4)
  1. VELCADE [Suspect]
     Indication: MANTLE CELL LYMPHOMA
     Dosage: 2 MG, UNK
     Route: 058
     Dates: start: 20111221, end: 20120323
  2. LEVACT [Suspect]
     Indication: MANTLE CELL LYMPHOMA
     Dosage: 140 MG, UNK
     Route: 042
     Dates: start: 20111221, end: 20120314
  3. DEXAMETHASONE [Suspect]
     Indication: MANTLE CELL LYMPHOMA
     Dosage: 40 MG, UNK
     Route: 042
     Dates: start: 20111221, end: 20120314
  4. MABTHERA [Suspect]
     Indication: MANTLE CELL LYMPHOMA
     Dosage: 600 MG, UNK
     Route: 042
     Dates: start: 20111221, end: 20120313

REACTIONS (7)
  - Pancreatic neoplasm [Fatal]
  - Metastasis [Fatal]
  - Pulmonary embolism [Unknown]
  - Pulmonary oedema [Unknown]
  - Lung disorder [Unknown]
  - Pleural effusion [Unknown]
  - Lobar pneumonia [Fatal]
